FAERS Safety Report 18147382 (Version 3)
Quarter: 2020Q4

REPORT INFORMATION
  Report Type: Spontaneous
  Country: US (occurrence: US)
  Receive Date: 20200813
  Receipt Date: 20201214
  Transmission Date: 20210113
  Serious: Yes (Hospitalization, Other)
  Sender: FDA-Public Use
  Company Number: US-GILEAD-2020-0489260

PATIENT
  Age: 41 Year
  Sex: Male
  Weight: 111.11 kg

DRUGS (54)
  1. VIDEX [Concomitant]
     Active Substance: DIDANOSINE
  2. DIFLUNISAL. [Concomitant]
     Active Substance: DIFLUNISAL
  3. FELODIPINE. [Concomitant]
     Active Substance: FELODIPINE
  4. GABAPENTIN. [Concomitant]
     Active Substance: GABAPENTIN
  5. INFLUENZA [Concomitant]
     Active Substance: INFLUENZA VIRUS VACCINE
  6. MELOXICAM. [Concomitant]
     Active Substance: MELOXICAM
  7. COBICISTAT;ELVITEGRAVIR;EMTRICITABINE;TENOFOVIR [Concomitant]
     Active Substance: COBICISTAT\ELVITEGRAVIR\EMTRICITABINE\TENOFOVIR
  8. PERCOCET [OXYCODONE HYDROCHLORIDE;OXYCODONE TEREPHTHALATE;PARACETAMOL] [Concomitant]
     Active Substance: ACETAMINOPHEN\OXYCODONE HYDROCHLORIDE\OXYCODONE TEREPHTHALATE
  9. QUETIAPINE. [Concomitant]
     Active Substance: QUETIAPINE
  10. VERAPAMIL [Concomitant]
     Active Substance: VERAPAMIL HYDROCHLORIDE
  11. EPIVIR [Concomitant]
     Active Substance: LAMIVUDINE
  12. CLONIDINE. [Concomitant]
     Active Substance: CLONIDINE
  13. HYDROCODONE [Concomitant]
     Active Substance: HYDROCODONE
  14. LISINOPRIL. [Concomitant]
     Active Substance: LISINOPRIL
  15. LORAZEPAM. [Concomitant]
     Active Substance: LORAZEPAM
  16. MIRTAZAPINE. [Concomitant]
     Active Substance: MIRTAZAPINE
  17. MULTIVITAMINS [VITAMINS NOS] [Concomitant]
     Active Substance: VITAMINS
  18. PREDNISONE. [Concomitant]
     Active Substance: PREDNISONE
  19. TETANUS AND DIPHTHERIA TOXOIDS ADSORBED (VACCINE) [Concomitant]
     Active Substance: CLOSTRIDIUM TETANI\CLOSTRIDIUM TETANI TOXOID ANTIGEN (FORMALDEHYDE INACTIVATED)\CORYNEBACTERIUM DIPHTHERIAE\CORYNEBACTERIUM DIPHTHERIAE TOXOID ANTIGEN (FORMALDEHYDE INACTIVATED)
  20. XANAX [Concomitant]
     Active Substance: ALPRAZOLAM
  21. GENVOYA [Concomitant]
     Active Substance: COBICISTAT\ELVITEGRAVIR\EMTRICITABINE\TENOFOVIR ALAFENAMIDE FUMARATE
  22. VIDEX EC [Concomitant]
     Active Substance: DIDANOSINE
  23. ACETAMINOPHEN;HYDROCODONE [Concomitant]
     Active Substance: ACETAMINOPHEN\HYDROCODONE
  24. ATENOLOL. [Concomitant]
     Active Substance: ATENOLOL
  25. DIDANOSINE. [Concomitant]
     Active Substance: DIDANOSINE
  26. FLUOXETINE [Concomitant]
     Active Substance: FLUOXETINE HYDROCHLORIDE
  27. VIREAD [Suspect]
     Active Substance: TENOFOVIR DISOPROXIL FUMARATE
     Indication: HIV INFECTION
     Dosage: UNK
     Route: 048
     Dates: start: 2001, end: 201301
  28. SUSTIVA [Concomitant]
     Active Substance: EFAVIRENZ
  29. DIPHENOXYLATE/ATROPINE [Concomitant]
     Active Substance: ATROPINE\DIPHENOXYLATE
  30. CLONAZEPAM. [Concomitant]
     Active Substance: CLONAZEPAM
  31. LISINOPRIL HCT [HYDROCHLOROTHIAZIDE;LISINOPRIL] [Concomitant]
     Active Substance: HYDROCHLOROTHIAZIDE\LISINOPRIL
  32. HYDROXYZINE [Concomitant]
     Active Substance: HYDROXYZINE HYDROCHLORIDE
  33. OXYCODONE [Concomitant]
     Active Substance: OXYCODONE
  34. ZIPRASIDONE. [Concomitant]
     Active Substance: ZIPRASIDONE
  35. TRUVADA [Suspect]
     Active Substance: EMTRICITABINE\TENOFOVIR DISOPROXIL FUMARATE
     Indication: HIV INFECTION
     Dosage: UNK
     Route: 065
     Dates: start: 201301, end: 201501
  36. HEPARIN [Concomitant]
     Active Substance: HEPARIN SODIUM
  37. LEVOCETIRIZINE [Concomitant]
     Active Substance: LEVOCETIRIZINE
  38. ATRIPLA [Suspect]
     Active Substance: EFAVIRENZ\EMTRICITABINE\TENOFOVIR DISOPROXIL FUMARATE
     Indication: HIV INFECTION
     Dosage: UNK
     Route: 048
     Dates: start: 2001, end: 201607
  39. TRIZIVIR [Concomitant]
     Active Substance: ABACAVIR SULFATE\LAMIVUDINE\ZIDOVUDINE
  40. AMLODIPINE [Concomitant]
     Active Substance: AMLODIPINE BESYLATE
  41. APIXABAN [Concomitant]
     Active Substance: APIXABAN
  42. ASPRIN [Concomitant]
     Active Substance: ASPIRIN
  43. HALOPERIDOL. [Concomitant]
     Active Substance: HALOPERIDOL
  44. IBUPROFEN. [Concomitant]
     Active Substance: IBUPROFEN
  45. TENOFOVIR [Concomitant]
     Active Substance: TENOFOVIR
  46. TOPIRAMATE. [Concomitant]
     Active Substance: TOPIRAMATE
  47. TYLENOL SINUS MEDICATION [Concomitant]
     Active Substance: ACETAMINOPHEN\PSEUDOEPHEDRINE HYDROCHLORIDE
  48. CODEINE AND GUAIFENESIN [Concomitant]
     Active Substance: CODEINE\GUAIFENESIN
  49. DOXAZOSIN [Concomitant]
     Active Substance: DOXAZOSIN MESYLATE
  50. EFAVIRENZ. [Concomitant]
     Active Substance: EFAVIRENZ
  51. EFAVIRENZ;EMTRICITABINE;TENOFOVIR [Concomitant]
  52. EMTRICITABINE;TENOFOVIR [Concomitant]
     Active Substance: EMTRICITABINE\TENOFOVIR
  53. HYDROCHLOROTHIAZIDE. [Concomitant]
     Active Substance: HYDROCHLOROTHIAZIDE
  54. SODIUM CHLORIDE. [Concomitant]
     Active Substance: SODIUM CHLORIDE

REACTIONS (8)
  - Acute kidney injury [Recovered/Resolved]
  - Bone density decreased [Unknown]
  - Pain [Not Recovered/Not Resolved]
  - Anxiety [Unknown]
  - Renal impairment [Not Recovered/Not Resolved]
  - Chronic kidney disease [Not Recovered/Not Resolved]
  - Emotional distress [Not Recovered/Not Resolved]
  - Anhedonia [Unknown]

NARRATIVE: CASE EVENT DATE: 201301
